FAERS Safety Report 10121342 (Version 2)
Quarter: 2014Q4

REPORT INFORMATION
  Report Type: Other
  Country: US (occurrence: US)
  Receive Date: 20140425
  Receipt Date: 20141210
  Transmission Date: 20150528
  Serious: Yes (Hospitalization, Other)
  Sender: FDA-Public Use
  Company Number: US-GSKPPD-2014GSK008407

PATIENT
  Age: 45 Year

DRUGS (5)
  1. ASPIRIN. [Concomitant]
     Active Substance: ASPIRIN
  2. PLAVIX [Concomitant]
     Active Substance: CLOPIDOGREL BISULFATE
  3. ACCUPRIL [Concomitant]
     Active Substance: QUINAPRIL HYDROCHLORIDE
     Route: 048
  4. LASIX [Concomitant]
     Active Substance: FUROSEMIDE
  5. AVANDIA [Suspect]
     Active Substance: ROSIGLITAZONE MALEATE
     Indication: DIABETES MELLITUS
     Dosage: AVANDIA WAS NOT LISTED AMONG THE PATIENTS RECORDS REVIEWED.
     Route: 048

REACTIONS (1)
  - Cerebral infarction [Recovered/Resolved]

NARRATIVE: CASE EVENT DATE: 20080721
